FAERS Safety Report 5964316-X (Version None)
Quarter: 2008Q4

REPORT INFORMATION
  Report Type: 
  Country: None (occurrence: None)
  Receive Date: 20081124
  Receipt Date: 20081118
  Transmission Date: 20090506
  Serious: Yes (Other)
  Sender: FDA-Public Use
  Company Number: US-PFIZER INC-2008097770

PATIENT
  Sex: Female

DRUGS (3)
  1. GEODON [Suspect]
     Dates: start: 20081101
  2. CYMBALTA [Concomitant]
  3. WELLBUTRIN [Concomitant]

REACTIONS (5)
  - BLOOD PRESSURE INCREASED [None]
  - CHEST DISCOMFORT [None]
  - EMOTIONAL DISORDER [None]
  - HYPERHIDROSIS [None]
  - MENTAL DISORDER [None]
